FAERS Safety Report 12336451 (Version 1)
Quarter: 2016Q2

REPORT INFORMATION
  Report Type: Spontaneous
  Country: US (occurrence: None)
  Receive Date: 20160504
  Receipt Date: 20160504
  Transmission Date: 20160815
  Serious: Yes (Hospitalization, Disabling)
  Sender: FDA-Public Use
  Company Number: None

PATIENT
  Age: 44 Year
  Sex: Female
  Weight: 72.58 kg

DRUGS (13)
  1. LEVOFLOXACIN, 500 MG [Suspect]
     Active Substance: LEVOFLOXACIN
     Indication: SINUSITIS
     Dosage: 10 TABLET (S) IN THE MORNING TAKEN BY MOUTH
     Route: 048
     Dates: start: 20160420, end: 20160427
  2. B12 METHYL [Concomitant]
  3. LEVOFLOXACIN, 500 MG [Suspect]
     Active Substance: LEVOFLOXACIN
     Indication: PNEUMONIA
     Dosage: 10 TABLET (S) IN THE MORNING TAKEN BY MOUTH
     Route: 048
     Dates: start: 20160420, end: 20160427
  4. NAC [Concomitant]
  5. TAURINE [Concomitant]
     Active Substance: TAURINE
  6. OMEGA-3 ACIDS [Concomitant]
     Active Substance: OMEGA-3 FATTY ACIDS
  7. VITAMIN D3 [Concomitant]
     Active Substance: CHOLECALCIFEROL
  8. GLUCOSAMINE CHONDROITIN [Concomitant]
     Active Substance: CHONDROITIN SULFATE (BOVINE)\GLUCOSAMINE HYDROCHLORIDE
  9. MULTIVITAMIN [Concomitant]
     Active Substance: VITAMINS
  10. MAGNESIUM [Concomitant]
     Active Substance: MAGNESIUM
  11. ALA [Concomitant]
  12. PROBIOTICS [Concomitant]
     Active Substance: PROBIOTICS NOS
  13. COLLAGEN [Concomitant]
     Active Substance: COLLAGEN

REACTIONS (12)
  - Palpitations [None]
  - Toxicity to various agents [None]
  - Neuralgia [None]
  - Tendon pain [None]
  - Myalgia [None]
  - Dizziness [None]
  - Panic reaction [None]
  - Sleep disorder [None]
  - Arthralgia [None]
  - Insomnia [None]
  - Dyspnoea [None]
  - Pain in extremity [None]

NARRATIVE: CASE EVENT DATE: 20160423
